FAERS Safety Report 21057446 (Version 1)
Quarter: 2022Q3

REPORT INFORMATION
  Report Type: Report from Study
  Country: BG (occurrence: BG)
  Receive Date: 20220708
  Receipt Date: 20220708
  Transmission Date: 20221027
  Serious: Yes (Hospitalization)
  Sender: FDA-Public Use
  Company Number: BG-PFIZER INC-2020396420

PATIENT
  Age: 56 Year
  Sex: Male
  Weight: 67.2 kg

DRUGS (9)
  1. ABROCITINIB [Suspect]
     Active Substance: ABROCITINIB
     Indication: Dermatitis atopic
     Dosage: 100 MG, DAILY
     Route: 048
     Dates: start: 20190426, end: 20190722
  2. ABROCITINIB [Suspect]
     Active Substance: ABROCITINIB
     Dosage: 100 MG, DAILY
     Route: 048
     Dates: start: 20190817, end: 20200402
  3. ABROCITINIB [Suspect]
     Active Substance: ABROCITINIB
     Dosage: 100 MG, DAILY
     Route: 048
     Dates: start: 20200428, end: 20201008
  4. NEBIVOLOL [Concomitant]
     Active Substance: NEBIVOLOL
     Indication: Hypertension
     Dosage: 2.5 MG, EVERY OTHER DAY (QOD)
     Route: 048
     Dates: start: 20200925
  5. HYDROCHLOROTHIAZIDE [Concomitant]
     Active Substance: HYDROCHLOROTHIAZIDE
     Indication: Hypertension
     Dosage: 6.25 MG, EVERY OTHER DAY (QOD)
     Route: 048
     Dates: start: 20200925
  6. VITAMIN B12 [Concomitant]
     Active Substance: CYANOCOBALAMIN
     Indication: Anaemia
     Dosage: 0.25 MG, 2X/DAY
     Route: 048
     Dates: start: 20200916
  7. FOLIC ACID [Concomitant]
     Active Substance: FOLIC ACID
     Indication: Anaemia
     Dosage: 0.4 MG, 1X/DAY
     Route: 048
     Dates: start: 20200916
  8. ARNIKAMED DOLO [Concomitant]
     Indication: Synovitis
     Dosage: 1 APPLICATION, 3X/DAY
     Route: 061
     Dates: start: 20200804, end: 20201007
  9. COLLAGEN [Concomitant]
     Active Substance: COLLAGEN
     Indication: Synovitis
     Dosage: 25 ML, 2X/DAY; LIQUID
     Route: 048
     Dates: start: 20200804, end: 20201007

REACTIONS (1)
  - Hepatitis toxic [Recovered/Resolved]

NARRATIVE: CASE EVENT DATE: 20201013
